FAERS Safety Report 17351959 (Version 1)
Quarter: 2020Q1

REPORT INFORMATION
  Report Type: Spontaneous
  Country: US (occurrence: US)
  Receive Date: 20200130
  Receipt Date: 20200130
  Transmission Date: 20200409
  Serious: Yes (Other)
  Sender: FDA-Public Use
  Company Number: US-BAYER-2020-016211

PATIENT
  Sex: Male

DRUGS (1)
  1. ALKA-SELTZER PLUS MAXIMUM STRENGTH COLD AND COUGH LIQUID GELS WITH COOL MENTHOL [Suspect]
     Active Substance: ACETAMINOPHEN\CHLORPHENIRAMINE MALEATE\DEXTROMETHORPHAN HYDROBROMIDE\PHENYLEPHRINE HYDROCHLORIDE
     Dosage: UNK

REACTIONS (3)
  - Choking [Unknown]
  - Product use complaint [None]
  - Retching [None]
